FAERS Safety Report 13742044 (Version 1)
Quarter: 2017Q3

REPORT INFORMATION
  Report Type: Spontaneous
  Country: US (occurrence: US)
  Receive Date: 20170711
  Receipt Date: 20170711
  Transmission Date: 20171127
  Serious: Yes (Other)
  Sender: FDA-Public Use
  Company Number: US-BAYER-2017-125829

PATIENT
  Sex: Female

DRUGS (4)
  1. VITAMIN B12 [Concomitant]
     Active Substance: CYANOCOBALAMIN
     Dosage: UNK
  2. FERROUS SULFATE. [Concomitant]
     Active Substance: FERROUS SULFATE
     Indication: BLOOD DISORDER
     Dosage: UNK
  3. ZEGERID OTC CAPSULES [Suspect]
     Active Substance: OMEPRAZOLE\SODIUM BICARBONATE
     Indication: GASTRIC DISORDER
     Dosage: UNK 30 MINUTES BEFORE EATING
     Route: 048
  4. ZEGERID OTC CAPSULES [Suspect]
     Active Substance: OMEPRAZOLE\SODIUM BICARBONATE
     Indication: GASTRIC DISORDER
     Dosage: UNK 30 MINUTES BEFORE EATING
     Route: 048
     Dates: end: 20170628

REACTIONS (7)
  - Abdominal pain upper [Unknown]
  - Flatulence [Unknown]
  - Gastric disorder [Unknown]
  - Incorrect drug administration duration [Unknown]
  - Cardiac flutter [Unknown]
  - Gastritis [Unknown]
  - Blood disorder [Unknown]
